FAERS Safety Report 5836161-7 (Version None)
Quarter: 2008Q3

REPORT INFORMATION
  Report Type: 
  Country: None (occurrence: None)
  Receive Date: 20080805
  Receipt Date: 20080729
  Transmission Date: 20090109
  Serious: Yes (Hospitalization, Other)
  Sender: FDA-Public Use
  Company Number: MEDI-0006785

PATIENT
  Age: 3 Month
  Sex: Female

DRUGS (3)
  1. SYNAGIS [Suspect]
     Dates: start: 20080101, end: 20080301
  2. SYNAGIS [Suspect]
     Dates: start: 20080101
  3. SYNAGIS [Suspect]
     Dates: start: 20080201

REACTIONS (3)
  - COMPLEX PARTIAL SEIZURES [None]
  - EPILEPSY [None]
  - INFANTILE SPASMS [None]
